FAERS Safety Report 4639238-7 (Version None)
Quarter: 2005Q2

REPORT INFORMATION
  Report Type: 
  Country: None (occurrence: None)
  Receive Date: 20050419
  Receipt Date: 19981022
  Transmission Date: 20051028
  Serious: Yes (Hospitalization)
  Sender: FDA-Public Use
  Company Number: FR-SANOFI-SYNTHELABO-S/FRZOL98147

PATIENT
  Age: 46 Year
  Sex: Female

DRUGS (3)
  1. STILNOX [Suspect]
     Indication: DRUG USE FOR UNKNOWN INDICATION
     Route: 048
     Dates: start: 19980719, end: 19980727
  2. AGREAL [Suspect]
     Indication: OVERDOSE
     Route: 048
     Dates: start: 19910301, end: 19980801
  3. XANAX [Suspect]
     Indication: DRUG USE FOR UNKNOWN INDICATION
     Dosage: 1.5 MG
     Route: 048
     Dates: start: 19980725, end: 19980727

REACTIONS (4)
  - ALANINE AMINOTRANSFERASE INCREASED [None]
  - ASPARTATE AMINOTRANSFERASE INCREASED [None]
  - PARKINSON'S DISEASE [None]
  - SOMNOLENCE [None]
